FAERS Safety Report 6096880-7 (Version None)
Quarter: 2009Q1

REPORT INFORMATION
  Report Type: 
  Country: None (occurrence: None)
  Receive Date: 20090225
  Receipt Date: 20090225
  Transmission Date: 20090719
  Serious: Yes (Hospitalization)
  Sender: FDA-Public Use
  Company Number: None

PATIENT
  Sex: Male
  Weight: 82.5547 kg

DRUGS (20)
  1. LISINOPRIL [Suspect]
     Indication: HYPERTENSION
     Dosage: 40 MG. Q 8 AM PO
     Route: 048
     Dates: start: 20051201, end: 20080918
  2. TOPROL-XL [Concomitant]
  3. PRINIVIL [Concomitant]
  4. NORVASC [Concomitant]
  5. GLYBURIDE [Concomitant]
  6. SENOKOT [Concomitant]
  7. E. C. [Concomitant]
  8. M.V.I. [Concomitant]
  9. CLOZAPINE [Concomitant]
  10. RISPERIDONE [Concomitant]
  11. SUDAFED 12 HOUR [Concomitant]
  12. COGENTIN [Concomitant]
  13. BENADRYL [Concomitant]
  14. METAMUCIL [Concomitant]
  15. BEANO TABS [Concomitant]
  16. LOPID [Concomitant]
  17. HYDROCHLOROTHIAZIDEC [Concomitant]
  18. PREVACID [Concomitant]
  19. CIMETIDINE [Concomitant]
  20. PREDNISONE [Concomitant]

REACTIONS (3)
  - SPEECH DISORDER [None]
  - SWOLLEN TONGUE [None]
  - TONGUE DISORDER [None]
